FAERS Safety Report 15074875 (Version 1)
Quarter: 2018Q2

REPORT INFORMATION
  Report Type: Spontaneous
  Country: US (occurrence: US)
  Receive Date: 20180627
  Receipt Date: 20180627
  Transmission Date: 20180711
  Serious: Yes (Hospitalization, Other)
  Sender: FDA-Public Use
  Company Number: US-SAOL THERAPEUTICS-2017SAO01332

PATIENT
  Age: 55 Year
  Weight: 60.68 kg

DRUGS (10)
  1. LIORESAL [Suspect]
     Active Substance: BACLOFEN
     Indication: MUSCLE SPASTICITY
     Dosage: 74.55 ?G, \DAY
     Route: 037
     Dates: end: 20170809
  2. ACTONEL [Concomitant]
     Active Substance: RISEDRONATE SODIUM
  3. MAGNESIUM [Concomitant]
     Active Substance: MAGNESIUM
  4. SENNA S [Concomitant]
     Active Substance: DOCUSATE SODIUM\SENNA LEAF
  5. CALCIUM [Concomitant]
     Active Substance: CALCIUM
  6. CLIMARA [Concomitant]
     Active Substance: ESTRADIOL
  7. FLONASE [Concomitant]
     Active Substance: FLUTICASONE PROPIONATE
  8. LIORESAL [Suspect]
     Active Substance: BACLOFEN
     Indication: SPINAL CORD INJURY
  9. VITAMIN C [Concomitant]
     Active Substance: ASCORBIC ACID
  10. FISH OIL [Concomitant]
     Active Substance: FISH OIL

REACTIONS (6)
  - Anxiety [Unknown]
  - Device battery issue [Recovered/Resolved]
  - Pruritus [Recovering/Resolving]
  - Complication associated with device [Recovered/Resolved]
  - Muscle spasticity [Recovering/Resolving]
  - Irritability [Unknown]

NARRATIVE: CASE EVENT DATE: 20170809
